FAERS Safety Report 7525695-5 (Version None)
Quarter: 2011Q2

REPORT INFORMATION
  Report Type: 
  Country: None (occurrence: None)
  Receive Date: 20110602
  Receipt Date: 20110602
  Transmission Date: 20111010
  Serious: Yes (Life-Threatening)
  Sender: FDA-Public Use
  Company Number: None

PATIENT
  Sex: Male
  Weight: 51.25 kg

DRUGS (11)
  1. HYDRALAZINE HCL [Concomitant]
  2. SOTALOL HCL [Concomitant]
  3. CYANOCOBALAMIN [Concomitant]
  4. PRADAXA [Suspect]
     Indication: CEREBROVASCULAR ACCIDENT
     Dosage: 150MG TWICE DAILY PO
     Route: 048
     Dates: start: 20110112, end: 20110120
  5. PRADAXA [Suspect]
     Indication: PROPHYLAXIS
     Dosage: 150MG TWICE DAILY PO
     Route: 048
     Dates: start: 20110112, end: 20110120
  6. LANSOPRAZOLE [Concomitant]
  7. FERROUS SULFATE TAB [Concomitant]
  8. MULTI-VITAMIN [Concomitant]
  9. INSULIN ASPART [Concomitant]
  10. ASPIRIN [Concomitant]
  11. AMLODIPINE [Concomitant]

REACTIONS (5)
  - HAEMOPTYSIS [None]
  - GINGIVAL BLEEDING [None]
  - HAEMORRHAGE [None]
  - RECTAL HAEMORRHAGE [None]
  - EYELID BLEEDING [None]
